FAERS Safety Report 13424774 (Version 2)
Quarter: 2017Q2

REPORT INFORMATION
  Report Type: Spontaneous
  Country: US (occurrence: US)
  Receive Date: 20170410
  Receipt Date: 20170421
  Transmission Date: 20170830
  Serious: Yes (Death, Hospitalization)
  Sender: FDA-Public Use
  Company Number: US-ACTELION-A-US2017-151840

PATIENT
  Age: 51 Year
  Sex: Female
  Weight: 61.22 kg

DRUGS (10)
  1. PREDNISONE. [Concomitant]
     Active Substance: PREDNISONE
  2. LASIX [Concomitant]
     Active Substance: FUROSEMIDE
  3. ADCIRCA [Concomitant]
     Active Substance: TADALAFIL
  4. VITAMIN D3 [Concomitant]
     Active Substance: CHOLECALCIFEROL
  5. GUAIFENESIN + DEXTROMETHORPANE HBR [Concomitant]
  6. SYNTHROID [Concomitant]
     Active Substance: LEVOTHYROXINE SODIUM
  7. LOSARTAN. [Concomitant]
     Active Substance: LOSARTAN
  8. OPSUMIT [Suspect]
     Active Substance: MACITENTAN
     Indication: PULMONARY ARTERIAL HYPERTENSION
     Dosage: 10 MG, QD
     Route: 048
     Dates: start: 20150602
  9. ALLOPURINOL. [Concomitant]
     Active Substance: ALLOPURINOL
  10. ATROVENT [Concomitant]
     Active Substance: IPRATROPIUM BROMIDE

REACTIONS (9)
  - Cardiac disorder [Fatal]
  - Pulse absent [Fatal]
  - Atrial fibrillation [Fatal]
  - Pleural effusion [Fatal]
  - Pulseless electrical activity [Fatal]
  - Ventricular fibrillation [Fatal]
  - Unresponsive to stimuli [Fatal]
  - Apnoeic attack [Fatal]
  - Chest discomfort [Fatal]

NARRATIVE: CASE EVENT DATE: 20170324
